FAERS Safety Report 7134845-4 (Version None)
Quarter: 2010Q4

REPORT INFORMATION
  Report Type: 
  Country: None (occurrence: None)
  Receive Date: 20101203
  Receipt Date: 20090504
  Transmission Date: 20110411
  Serious: Yes (Other)
  Sender: FDA-Public Use
  Company Number: NL-ROCHE-745592

PATIENT
  Sex: Male

DRUGS (2)
  1. AVASTIN [Suspect]
     Indication: METASTATIC RENAL CELL CARCINOMA
     Route: 042
  2. INTERFERON [Suspect]
     Indication: METASTATIC RENAL CELL CARCINOMA
     Dosage: DRUG NAME REPORTED AS: INTERFERON, ROUTE: INJECTION
     Route: 050

REACTIONS (1)
  - MALIGNANT NEOPLASM PROGRESSION [None]
